FAERS Safety Report 7101300-7 (Version None)
Quarter: 2010Q4

REPORT INFORMATION
  Report Type: 
  Country: None (occurrence: None)
  Receive Date: 20101115
  Receipt Date: 20101104
  Transmission Date: 20110411
  Serious: Yes (Other)
  Sender: FDA-Public Use
  Company Number: FR-BAXTER-2010BH025317

PATIENT
  Age: 20 Year
  Sex: Male

DRUGS (13)
  1. GAMMAGARD LIQUID [Suspect]
     Indication: OPPORTUNISTIC INFECTION PROPHYLAXIS
     Route: 042
     Dates: start: 20091028, end: 20100416
  2. GAMMAGARD LIQUID [Suspect]
     Route: 042
     Dates: start: 20100517, end: 20100517
  3. GAMMAGARD LIQUID [Suspect]
     Route: 042
     Dates: start: 20100517, end: 20100517
  4. GAMMAGARD LIQUID [Suspect]
     Route: 042
     Dates: start: 20100517, end: 20100517
  5. NAVELBINE [Suspect]
     Indication: HODGKIN'S DISEASE STAGE IV
     Route: 042
     Dates: start: 20100419, end: 20100517
  6. NAVELBINE [Suspect]
     Indication: OFF LABEL USE
     Route: 042
     Dates: start: 20100419, end: 20100517
  7. GEMCITABINE [Suspect]
     Indication: HODGKIN'S DISEASE STAGE IV
     Route: 042
     Dates: start: 20100419, end: 20100517
  8. SOLUPRED [Suspect]
     Indication: CHEMOTHERAPY
     Route: 048
     Dates: start: 20100419, end: 20100518
  9. EMEND [Concomitant]
  10. ZOPHREN [Concomitant]
  11. ORACILLINE [Concomitant]
  12. BACTRIM [Concomitant]
  13. VFEND [Concomitant]

REACTIONS (2)
  - DEEP VEIN THROMBOSIS [None]
  - RENAL VEIN THROMBOSIS [None]
